FAERS Safety Report 21044002 (Version 1)
Quarter: 2022Q3

REPORT INFORMATION
  Report Type: Spontaneous
  Country: US (occurrence: None)
  Receive Date: 20220702
  Receipt Date: 20220702
  Transmission Date: 20221027
  Serious: No
  Sender: FDA-Public Use
  Company Number: None

PATIENT
  Age: 64 Year
  Sex: Female
  Weight: 68.85 kg

DRUGS (5)
  1. BELBUCA [Suspect]
     Active Substance: BUPRENORPHINE HYDROCHLORIDE
     Indication: Pain
     Dosage: OTHER QUANTITY : 1 FILM;?FREQUENCY : TWICE A DAY;?OTHER ROUTE : STUCK TO INSIDE OF CHEEK;?
     Route: 050
     Dates: start: 20220630, end: 20220702
  2. Thyroid meds [Concomitant]
  3. ClimaraPro Patch [Concomitant]
  4. HYDROXYCHLOROQUINE [Concomitant]
     Active Substance: HYDROXYCHLOROQUINE
  5. DULOXETINE [Concomitant]
     Active Substance: DULOXETINE

REACTIONS (2)
  - Toothache [None]
  - Mouth haemorrhage [None]

NARRATIVE: CASE EVENT DATE: 20220701
